FAERS Safety Report 17884301 (Version 1)
Quarter: 2020Q2

REPORT INFORMATION
  Report Type: Spontaneous
  Country: CA (occurrence: CA)
  Receive Date: 20200611
  Receipt Date: 20200611
  Transmission Date: 20200714
  Serious: Yes (Life-Threatening, Hospitalization)
  Sender: FDA-Public Use
  Company Number: CA-ACCORD-184592

PATIENT
  Age: 64 Year
  Sex: Female
  Weight: 41 kg

DRUGS (2)
  1. PACLITAXEL/PACLITAXEL LIPOSOME [Suspect]
     Active Substance: PACLITAXEL
     Indication: GASTRIC CANCER
     Dosage: SOLUTION INTRAVENOUS, 1 EVERY 1 WEEKS
     Route: 042
  2. CYRAMZA [Suspect]
     Active Substance: RAMUCIRUMAB
     Indication: PRODUCT USED FOR UNKNOWN INDICATION
     Dosage: 1 EVERY 2 WEEKS, SOLUTION INTRAVENOUS, SINGLE USE?VIALS
     Route: 042

REACTIONS (5)
  - Hyperthermia [Unknown]
  - Pneumonia [Unknown]
  - Off label use [Unknown]
  - Chills [Unknown]
  - Vomiting [Unknown]
